FAERS Safety Report 13085438 (Version 1)
Quarter: 2017Q1

REPORT INFORMATION
  Report Type: Spontaneous
  Country: US (occurrence: US)
  Receive Date: 20170104
  Receipt Date: 20170104
  Transmission Date: 20170428
  Serious: No
  Sender: FDA-Public Use
  Company Number: US-PFIZER INC-2016601622

PATIENT
  Sex: Female

DRUGS (1)
  1. LYRICA [Suspect]
     Active Substance: PREGABALIN
     Indication: PAIN
     Dosage: 100 MG, 2X/DAY

REACTIONS (7)
  - Muscle twitching [Unknown]
  - Feeling abnormal [Unknown]
  - Drug ineffective [Not Recovered/Not Resolved]
  - Myalgia [Unknown]
  - Muscle spasms [Unknown]
  - Oral mucosal blistering [Unknown]
  - Vision blurred [Unknown]
